FAERS Safety Report 7039276-3 (Version None)
Quarter: 2010Q4

REPORT INFORMATION
  Report Type: 
  Country: None (occurrence: None)
  Receive Date: 20101012
  Receipt Date: 20101001
  Transmission Date: 20110411
  Serious: No
  Sender: FDA-Public Use
  Company Number: US-JNJFOC-20101000840

PATIENT
  Sex: Female
  Weight: 136.99 kg

DRUGS (2)
  1. DURAGESIC-100 [Suspect]
     Indication: PAIN
     Dosage: NDC#505809105
     Route: 062
  2. UNKNOWN MEDICATION [Concomitant]
     Route: 065

REACTIONS (4)
  - DRUG DOSE OMISSION [None]
  - DYSKINESIA [None]
  - RESTLESS LEGS SYNDROME [None]
  - WITHDRAWAL SYNDROME [None]
